APPROVED DRUG PRODUCT: GERMA-MEDICA
Active Ingredient: HEXACHLOROPHENE
Strength: 1%
Dosage Form/Route: SOLUTION;TOPICAL
Application: N017412 | Product #001
Applicant: HUNTINGTON LABORATORIES INC
Approved: Approved Prior to Jan 1, 1982 | RLD: No | RS: No | Type: DISCN